FAERS Safety Report 8423570-5 (Version None)
Quarter: 2012Q2

REPORT INFORMATION
  Report Type: 
  Country: None (occurrence: None)
  Receive Date: 20120608
  Receipt Date: 20120601
  Transmission Date: 20120825
  Serious: Yes (Hospitalization, Other)
  Sender: FDA-Public Use
  Company Number: GB-B.I. PHARMACEUTICALS,INC./RIDGEFIELD-2012-UK-00741UK

PATIENT
  Age: 55 Year
  Sex: Female

DRUGS (8)
  1. ACETAMINOPHEN [Concomitant]
  2. SIMVASTATIN [Concomitant]
  3. PRADAXA [Suspect]
     Indication: THROMBOSIS PROPHYLAXIS
     Dosage: 220 MG
     Route: 048
     Dates: start: 20120425, end: 20120516
  4. CODEINE SULFATE [Concomitant]
  5. OMEPRAZOLE [Concomitant]
  6. SENNA-MINT WAF [Concomitant]
  7. ALBUTEROL [Concomitant]
  8. NAPROXEN [Concomitant]

REACTIONS (5)
  - RASH [None]
  - BLISTER [None]
  - COAGULOPATHY [None]
  - SKIN HAEMORRHAGE [None]
  - ERYTHEMA [None]
